FAERS Safety Report 19193179 (Version 1)
Quarter: 2021Q2

REPORT INFORMATION
  Report Type: Spontaneous
  Country: RO (occurrence: RO)
  Receive Date: 20210429
  Receipt Date: 20210429
  Transmission Date: 20210717
  Serious: Yes (Other)
  Sender: FDA-Public Use
  Company Number: RO-ABBVIE-21K-135-3876954-00

PATIENT

DRUGS (2)
  1. DASABUVIR [Suspect]
     Active Substance: DASABUVIR
     Indication: CHRONIC HEPATITIS C
     Dosage: THERAPY DURATION WAS EITHER 8 OR 12 WEEKS
     Route: 048
  2. OMBITASVIR/PARITAPREVIR/RITONAVIR [Suspect]
     Active Substance: OMBITASVIR\PARITAPREVIR\RITONAVIR
     Indication: CHRONIC HEPATITIS C
     Dosage: 75 MG/12.5/50 MG PER TABLET, THERAPY DURATION WAS EITHER 8 OR 12 WEEKS
     Route: 048

REACTIONS (7)
  - Bacterial infection [Unknown]
  - Hypersensitivity [Unknown]
  - Hepatitis toxic [Unknown]
  - Depression [Unknown]
  - Hepatic failure [Unknown]
  - Drug ineffective [Unknown]
  - Cardiovascular disorder [Unknown]
